FAERS Safety Report 18456056 (Version 1)
Quarter: 2020Q4

REPORT INFORMATION
  Report Type: Spontaneous
  Country: GB (occurrence: GB)
  Receive Date: 20201103
  Receipt Date: 20201103
  Transmission Date: 20210114
  Serious: Yes (Other)
  Sender: FDA-Public Use
  Company Number: GB-TEVA-2020-GB-1843549

PATIENT
  Age: 41 Year
  Sex: Female
  Weight: 47 kg

DRUGS (5)
  1. BETNOVATE [Concomitant]
     Active Substance: BETAMETHASONE
     Dosage: USE AS DIRECTED, 2DF
     Dates: start: 20200921
  2. PREDNISOLONE. [Concomitant]
     Active Substance: PREDNISOLONE
     Dosage: FOR 5 DAYS THEN GO ONTO ANTI - HISTAMINES, 6 DF
     Dates: start: 20201001
  3. CETRABEN EMOLLIENT CREAM [Concomitant]
     Dosage: APPLY, 3 DF
     Dates: start: 20200921
  4. NITROFURANTOIN. [Suspect]
     Active Substance: NITROFURANTOIN
     Dosage: 200 MG
     Dates: start: 20200921
  5. CHLORPHENAMINE [Concomitant]
     Active Substance: CHLORPHENIRAMINE MALEATE
     Dosage: TAKE ONE EVERY 4-6 HRS - WILL MAKE YOU DROWSY
     Dates: start: 20201001

REACTIONS (2)
  - Type III immune complex mediated reaction [Unknown]
  - Dermatitis exfoliative [Unknown]

NARRATIVE: CASE EVENT DATE: 20201001
